FAERS Safety Report 6377418-3 (Version None)
Quarter: 2009Q3

REPORT INFORMATION
  Report Type: 
  Country: None (occurrence: None)
  Receive Date: 20090925
  Receipt Date: 20090925
  Transmission Date: 20100115
  Serious: Yes (Other)
  Sender: FDA-Public Use
  Company Number: CH-PFIZER INC-2009254171

PATIENT
  Age: 72 Year

DRUGS (1)
  1. ATORVASTATIN CALCIUM [Suspect]
     Indication: CAROTID ARTERIOSCLEROSIS
     Dosage: 80 MG, 1X/DAY

REACTIONS (3)
  - ALANINE AMINOTRANSFERASE INCREASED [None]
  - ASPARTATE AMINOTRANSFERASE INCREASED [None]
  - GAMMA-GLUTAMYLTRANSFERASE INCREASED [None]
